FAERS Safety Report 6182276-6 (Version None)
Quarter: 2009Q2

REPORT INFORMATION
  Report Type: 
  Country: None (occurrence: None)
  Receive Date: 20090507
  Receipt Date: 20090505
  Transmission Date: 20091009
  Serious: Yes (Hospitalization)
  Sender: FDA-Public Use
  Company Number: US-BRISTOL-MYERS SQUIBB COMPANY-14611651

PATIENT
  Age: 78 Year
  Sex: Female
  Weight: 44 kg

DRUGS (5)
  1. COUMADIN [Suspect]
     Indication: THROMBOSIS
     Dates: start: 20080901
  2. PREVACID [Concomitant]
  3. DILTIAZEM HCL [Concomitant]
  4. NITROGLYCERIN [Concomitant]
     Route: 060
  5. FLAGYL [Concomitant]

REACTIONS (7)
  - ASTHENIA [None]
  - BLOOD POTASSIUM DECREASED [None]
  - CLOSTRIDIAL INFECTION [None]
  - CYANOSIS [None]
  - DEHYDRATION [None]
  - MALNUTRITION [None]
  - PERIPHERAL COLDNESS [None]
